FAERS Safety Report 9306014 (Version 1)
Quarter: 2013Q2

REPORT INFORMATION
  Report Type: Spontaneous
  Country: DE (occurrence: DE)
  Receive Date: 20130523
  Receipt Date: 20130523
  Transmission Date: 20140414
  Serious: Yes (Hospitalization, Other)
  Sender: FDA-Public Use
  Company Number: DE-MYLANLABS-2013S1010529

PATIENT
  Age: 0 Year
  Sex: Male
  Weight: 3.8 kg

DRUGS (4)
  1. CITALOPRAM [Suspect]
     Dosage: 30 [MG/D ]/ DOSAGE INCREASED FROM 20 MG/D TO 30 MG/D; BREAK BETWEEN WEEK 14 AND 18
     Route: 064
  2. ATOSIL [Concomitant]
     Route: 064
     Dates: start: 20120815, end: 20121015
  3. ORTHOMOL [Concomitant]
     Indication: PROPHYLAXIS OF NEURAL TUBE DEFECT
     Dosage: 0.5 [MG/D ]  NATAL
     Route: 064
     Dates: start: 20120404, end: 20130113
  4. TAVOR [Concomitant]
     Dosage: 5 [MG/WK ]
     Route: 064
     Dates: start: 20121015, end: 20121115

REACTIONS (6)
  - Exposure during pregnancy [Recovered/Resolved]
  - Hypertonia neonatal [Recovered/Resolved]
  - Agitation neonatal [Recovered/Resolved]
  - Neonatal hyponatraemia [Recovered/Resolved]
  - Temperature regulation disorder [Recovered/Resolved]
  - Neonatal respiratory distress syndrome [Recovered/Resolved]
